FAERS Safety Report 5507239-2 (Version None)
Quarter: 2007Q4

REPORT INFORMATION
  Report Type: 
  Country: None (occurrence: None)
  Receive Date: 20071105
  Receipt Date: 20071105
  Transmission Date: 20080405
  Serious: Yes (Disabling, Other)
  Sender: FDA-Public Use
  Company Number: None

PATIENT
  Sex: Male
  Weight: 77.1115 kg

DRUGS (3)
  1. GOLD BOND HEALING MEDICATED BODY POWDER [Suspect]
     Dosage: ONE DOSE
     Dates: start: 20070219
  2. GOLD BOND HEALING MEDICATED BODY POWDER [Suspect]
  3. GOLD BOND HEALING MEDICATED BODY POWDER [Suspect]

REACTIONS (8)
  - APPLICATION SITE REACTION [None]
  - CAUSTIC INJURY [None]
  - MELANOCYTIC NAEVUS [None]
  - NAEVUS HAEMORRHAGE [None]
  - ORCHITIS NONINFECTIVE [None]
  - SWELLING [None]
  - TESTICULAR PAIN [None]
  - TESTICULAR SWELLING [None]
